FAERS Safety Report 6597010-5 (Version None)
Quarter: 2010Q1

REPORT INFORMATION
  Report Type: 
  Country: None (occurrence: None)
  Receive Date: 20100223
  Receipt Date: 20100215
  Transmission Date: 20100710
  Serious: Yes (Other)
  Sender: FDA-Public Use
  Company Number: A0844523A

PATIENT
  Age: 49 Year
  Sex: Female

DRUGS (5)
  1. TYKERB [Suspect]
     Indication: BREAST CANCER
     Dosage: 5TAB FIVE TIMES PER DAY
     Route: 048
     Dates: start: 20100121
  2. XELODA [Suspect]
     Indication: BREAST CANCER
     Dates: start: 20100121, end: 20100209
  3. LORATADINE [Concomitant]
  4. BENADRYL [Concomitant]
  5. SIMVASTATIN [Concomitant]

REACTIONS (11)
  - CHAPPED LIPS [None]
  - DIARRHOEA [None]
  - DRY SKIN [None]
  - FAECES PALE [None]
  - GASTROENTERITIS [None]
  - NAUSEA [None]
  - ORAL PAIN [None]
  - PYREXIA [None]
  - STOMATITIS [None]
  - URINARY TRACT INFECTION [None]
  - VOMITING [None]
